FAERS Safety Report 4504269-4 (Version None)
Quarter: 2004Q4

REPORT INFORMATION
  Report Type: 
  Country: None (occurrence: None)
  Receive Date: 20041112
  Receipt Date: 20041108
  Transmission Date: 20050328
  Serious: Yes (Life-Threatening, Hospitalization, Other)
  Sender: FDA-Public Use
  Company Number: US-JNJFOC-20040708202

PATIENT
  Age: 53 Year
  Sex: Female
  Weight: 45.3597 kg

DRUGS (7)
  1. EXTRA STRENGTH TYLENOL [Suspect]
     Indication: MUSCLE DISORDER
     Dosage: 1000MG 1 IN 4 HOUR ORAL
     Route: 048
     Dates: start: 20030318, end: 20030325
  2. CLARITIN (LORATDINE) [Concomitant]
  3. NEXIUM [Concomitant]
  4. SYNTHROID [Concomitant]
  5. PHENOBARBITAL TAB [Concomitant]
  6. CELEXA [Concomitant]
  7. CONJUGATED ESTROGEN [Concomitant]

REACTIONS (12)
  - CONFUSIONAL STATE [None]
  - DEPRESSED LEVEL OF CONSCIOUSNESS [None]
  - DISORIENTATION [None]
  - DRUG TOXICITY [None]
  - HEADACHE [None]
  - HEPATIC FAILURE [None]
  - HEPATIC NECROSIS [None]
  - LIVER TRANSPLANT [None]
  - MOOD ALTERED [None]
  - NEUROPATHY [None]
  - PERONEAL NERVE PALSY [None]
  - SOMNOLENCE [None]
